FAERS Safety Report 4422934-4 (Version None)
Quarter: 2004Q3

REPORT INFORMATION
  Report Type: 
  Country: None (occurrence: None)
  Receive Date: 20040806
  Receipt Date: 20040726
  Transmission Date: 20050211
  Serious: Yes (Other)
  Sender: FDA-Public Use
  Company Number: US-JNJFOC-20040707400

PATIENT
  Age: 44 Year
  Sex: Female

DRUGS (1)
  1. DURAGESIC [Suspect]
     Dosage: 200 UG/HR, TRANSDERMAL
     Route: 062

REACTIONS (1)
  - CONVULSION [None]
